FAERS Safety Report 6183672-3 (Version None)
Quarter: 2009Q2

REPORT INFORMATION
  Report Type: 
  Country: None (occurrence: None)
  Receive Date: 20090508
  Receipt Date: 20090428
  Transmission Date: 20091009
  Serious: Yes (Hospitalization)
  Sender: FDA-Public Use
  Company Number: JP-TEVA-193521ISR

PATIENT
  Sex: Male

DRUGS (4)
  1. FLUOROURACIL [Suspect]
     Indication: COLORECTAL CANCER
     Route: 040
     Dates: start: 20090212
  2. FOLINIC ACID [Suspect]
     Indication: COLORECTAL CANCER
     Route: 042
     Dates: start: 20090212
  3. IRINOTECAN HCL [Suspect]
     Indication: COLORECTAL CANCER
     Route: 042
     Dates: start: 20090212
  4. SUNITINIB MALATE [Suspect]
     Indication: COLORECTAL CANCER
     Route: 048
     Dates: start: 20090212

REACTIONS (1)
  - HYPERTENSION [None]
